FAERS Safety Report 7437417-7 (Version None)
Quarter: 2011Q2

REPORT INFORMATION
  Report Type: 
  Country: None (occurrence: None)
  Receive Date: 20110426
  Receipt Date: 20110419
  Transmission Date: 20111010
  Serious: Yes (Other)
  Sender: FDA-Public Use
  Company Number: DE-SANOFI-AVENTIS-2011SA002741

PATIENT
  Age: 58 Year
  Sex: Female
  Weight: 86 kg

DRUGS (5)
  1. BISOPROLOL [Concomitant]
     Indication: TACHYCARDIA
     Route: 048
     Dates: start: 20050401
  2. BISOPROLOL [Concomitant]
     Indication: HYPERTENSION
     Route: 048
     Dates: start: 20050401
  3. PHENPROCOUMON [Concomitant]
     Indication: ANTICOAGULANT THERAPY
     Dosage: DOSAGE: ACCORDING TO INR
     Route: 065
     Dates: start: 20090701
  4. MULTAQ [Suspect]
     Route: 048
     Dates: start: 20110105
  5. TAMBOCOR [Concomitant]
     Route: 042
     Dates: start: 20110103, end: 20110103

REACTIONS (6)
  - TENSION [None]
  - PERIPHERAL COLDNESS [None]
  - CHILLS [None]
  - BLOOD PRESSURE INCREASED [None]
  - ANGINA PECTORIS [None]
  - AUTONOMIC NERVOUS SYSTEM IMBALANCE [None]
